FAERS Safety Report 9326201 (Version 1)
Quarter: 2013Q2

REPORT INFORMATION
  Report Type: Spontaneous
  Country: BR (occurrence: BR)
  Receive Date: 20130604
  Receipt Date: 20130604
  Transmission Date: 20140414
  Serious: Yes (Death)
  Sender: FDA-Public Use
  Company Number: BR-PFIZER INC-2013100237

PATIENT
  Age: 60 Year
  Sex: Male
  Weight: 68 kg

DRUGS (10)
  1. SUTENT [Suspect]
     Indication: RENAL CANCER
     Dosage: 50 MG, CYCLIC (4 TO 2)
     Route: 048
     Dates: start: 20130129, end: 20130429
  2. SUTENT [Suspect]
     Indication: RENAL CELL CARCINOMA
  3. VITAMIN B12 [Concomitant]
  4. CALCIUM CARBONATE [Concomitant]
  5. FOLIC ACID [Concomitant]
  6. MINERAL OIL [Concomitant]
  7. LUFTAL [Concomitant]
  8. AMITRIPTYLINE [Concomitant]
  9. EUTONIS [Concomitant]
  10. PACO [Concomitant]

REACTIONS (3)
  - Death [Fatal]
  - Infection [Unknown]
  - Epistaxis [Recovered/Resolved]
